FAERS Safety Report 18513063 (Version 3)
Quarter: 2021Q3

REPORT INFORMATION
  Report Type: Spontaneous
  Country: US (occurrence: US)
  Receive Date: 20201117
  Receipt Date: 20210816
  Transmission Date: 20211014
  Serious: No
  Sender: FDA-Public Use
  Company Number: US-PFIZER INC-2020453509

PATIENT
  Age: 56 Year
  Sex: Female

DRUGS (2)
  1. IBRANCE [Suspect]
     Active Substance: PALBOCICLIB
     Dosage: 75MG CS QD FOR 14 D/28 D
     Dates: start: 20180602
  2. IBRANCE [Suspect]
     Active Substance: PALBOCICLIB
     Indication: BREAST CANCER FEMALE
     Dosage: 125 MG, CYCLIC (125 MG CAPS QD (ONCE DAILY) DAYS 1 ? 21, EVERY 28 DAYS)
     Dates: start: 20180206

REACTIONS (1)
  - White blood cell count decreased [Unknown]
